FAERS Safety Report 5808835-5 (Version None)
Quarter: 2008Q3

REPORT INFORMATION
  Report Type: 
  Country: None (occurrence: None)
  Receive Date: 20080710
  Receipt Date: 20080710
  Transmission Date: 20090109
  Serious: No
  Sender: FDA-Public Use
  Company Number: None

PATIENT
  Age: 53 Year
  Sex: Female

DRUGS (2)
  1. PREGABALIN [Suspect]
     Indication: FIBROMYALGIA
     Dosage: 75 MG BID PO
     Route: 048
     Dates: start: 20080514, end: 20080602
  2. PREGABALIN [Suspect]
     Indication: PAIN
     Dosage: 75 MG BID PO
     Route: 048
     Dates: start: 20080514, end: 20080602

REACTIONS (1)
  - AGITATION [None]
